FAERS Safety Report 8255553-2 (Version None)
Quarter: 2012Q1

REPORT INFORMATION
  Report Type: 
  Country: None (occurrence: None)
  Receive Date: 20120330
  Receipt Date: 20120314
  Transmission Date: 20120608
  Serious: Yes (Other)
  Sender: FDA-Public Use
  Company Number: 2012P1009731

PATIENT
  Age: 68 Year
  Sex: Female

DRUGS (13)
  1. CELEBREX [Suspect]
     Indication: POLYARTHRITIS
     Dosage: 200 MG; QD
  2. ACETAZOLAMIDE [Suspect]
     Indication: EYE OEDEMA
     Dosage: 125 MG;QD
  3. THIAZIDE [Concomitant]
  4. KETOROLAC TROMETHAMINE [Suspect]
     Indication: EYE OEDEMA
     Dosage: OPH
     Route: 047
  5. TOBRAMYCIN [Suspect]
     Indication: EYE OEDEMA
     Dosage: OPH
     Route: 047
     Dates: end: 20111001
  6. OMNIPRED [Suspect]
     Indication: EYE OEDEMA
     Dosage: OPH
     Route: 048
  7. PROPYLENE GLYCOL [Suspect]
     Indication: EYE OEDEMA
     Dosage: OPH
     Route: 047
  8. LEVOXYL [Concomitant]
  9. NAPROXEN [Suspect]
     Indication: POLYARTHRITIS
     Dates: end: 20111201
  10. SIMVASTATIN [Suspect]
     Indication: BLOOD CHOLESTEROL INCREASED
     Dates: end: 20111001
  11. CORTISONE [Suspect]
     Indication: EYE OEDEMA
     Dosage: QID
     Dates: start: 20110501
  12. LIPITOR [Suspect]
     Indication: BLOOD CHOLESTEROL INCREASED
     Dosage: 20 MG;QD;PO
     Route: 048
     Dates: start: 20111001
  13. PRED FORTE [Suspect]
     Indication: EYE OEDEMA
     Dosage: OPH
     Route: 047

REACTIONS (6)
  - POLYARTHRITIS [None]
  - DRUG INEFFECTIVE [None]
  - EYE OEDEMA [None]
  - VISION BLURRED [None]
  - INTRAOCULAR PRESSURE INCREASED [None]
  - CATARACT OPERATION COMPLICATION [None]
